FAERS Safety Report 12423708 (Version 2)
Quarter: 2017Q2

REPORT INFORMATION
  Report Type: Spontaneous
  Country: US (occurrence: US)
  Receive Date: 20160601
  Receipt Date: 20170602
  Transmission Date: 20170830
  Serious: No
  Sender: FDA-Public Use
  Company Number: US-NOVEN PHARMACEUTICALS, INC.-US2015000848

PATIENT

DRUGS (3)
  1. DAYTRANA [Suspect]
     Active Substance: METHYLPHENIDATE
     Dosage: USING TWO 15 MG PATCHES
     Route: 062
     Dates: start: 201509
  2. DAYTRANA [Suspect]
     Active Substance: METHYLPHENIDATE
     Indication: ATTENTION DEFICIT/HYPERACTIVITY DISORDER
     Dosage: 30 MG, UNKNOWN
     Route: 062
     Dates: start: 2012, end: 201508
  3. DAYTRANA [Suspect]
     Active Substance: METHYLPHENIDATE
     Dosage: USING TWO 20 MG PATCHES TO MAKE A TOTAL DOSE OF 40 MG, UNKNOWN
     Route: 062

REACTIONS (4)
  - Wrong technique in product usage process [Not Recovered/Not Resolved]
  - Overdose [Not Recovered/Not Resolved]
  - No adverse event [Unknown]
  - Off label use [Unknown]

NARRATIVE: CASE EVENT DATE: 2012
